FAERS Safety Report 7809733-8 (Version None)
Quarter: 2011Q4

REPORT INFORMATION
  Report Type: 
  Country: None (occurrence: None)
  Receive Date: 20111012
  Receipt Date: 20111004
  Transmission Date: 20120403
  Serious: Yes (Hospitalization)
  Sender: FDA-Public Use
  Company Number: BE-GLAXOSMITHKLINE-B0754438A

PATIENT
  Sex: Female

DRUGS (2)
  1. ALLI [Suspect]
     Indication: PRODUCT USED FOR UNKNOWN INDICATION
     Dosage: 60MG THREE TIMES PER DAY
     Route: 065
     Dates: start: 20110909, end: 20110916
  2. ORGAMETRIL [Concomitant]

REACTIONS (2)
  - RASH [None]
  - PRURITUS [None]
